FAERS Safety Report 4712940-4 (Version None)
Quarter: 2005Q3

REPORT INFORMATION
  Report Type: 
  Country: None (occurrence: None)
  Receive Date: 20050712
  Receipt Date: 20050712
  Transmission Date: 20060218
  Serious: No
  Sender: FDA-Public Use
  Company Number: None

PATIENT
  Sex: Female
  Weight: 72.5755 kg

DRUGS (2)
  1. ZOLOFT [Suspect]
     Indication: POSTPARTUM DEPRESSION
     Dosage: 50MG   PER DAY   ORAL
     Route: 048
     Dates: start: 20030901, end: 20050711
  2. ALCOHOL [Concomitant]

REACTIONS (3)
  - AGGRESSION [None]
  - ALCOHOL USE [None]
  - MENTAL DISORDER [None]
